FAERS Safety Report 11806819 (Version 2)
Quarter: 2016Q4

REPORT INFORMATION
  Report Type: Spontaneous
  Country: TW (occurrence: TW)
  Receive Date: 20151207
  Receipt Date: 20161114
  Transmission Date: 20170206
  Serious: Yes (Other)
  Sender: FDA-Public Use
  Company Number: TW-AMGEN-TWNSP2015016701

PATIENT
  Sex: Male

DRUGS (1)
  1. ENBREL [Suspect]
     Active Substance: ETANERCEPT
     Indication: EXPOSURE DURING PREGNANCY
     Dosage: 25 MG, BIW
     Route: 064
     Dates: start: 200608

REACTIONS (2)
  - Maternal exposure during pregnancy [Unknown]
  - Premature baby [Unknown]
